FAERS Safety Report 17897335 (Version 4)
Quarter: 2023Q2

REPORT INFORMATION
  Report Type: Spontaneous
  Country: US (occurrence: US)
  Receive Date: 20200615
  Receipt Date: 20230613
  Transmission Date: 20230721
  Serious: Yes (Hospitalization, Other)
  Sender: FDA-Public Use
  Company Number: US-PFIZER INC-2020231695

PATIENT
  Age: 60 Year
  Sex: Female

DRUGS (1)
  1. IBRANCE [Suspect]
     Active Substance: PALBOCICLIB
     Indication: Breast cancer female
     Dosage: 125 MG
     Dates: start: 20191001

REACTIONS (7)
  - Pneumonia [Unknown]
  - COVID-19 [Unknown]
  - Dry skin [Unknown]
  - Scratch [Unknown]
  - Contusion [Unknown]
  - Brain fog [Unknown]
  - Memory impairment [Unknown]
